FAERS Safety Report 19243085 (Version 2)
Quarter: 2021Q2

REPORT INFORMATION
  Report Type: Spontaneous
  Country: JP (occurrence: JP)
  Receive Date: 20210511
  Receipt Date: 20210607
  Transmission Date: 20210717
  Serious: Yes (Hospitalization, Other)
  Sender: FDA-Public Use
  Company Number: JP-GLAXOSMITHKLINE-JPCH2021025685

PATIENT
  Age: 75 Year
  Sex: Male

DRUGS (2)
  1. KEFRAL [Suspect]
     Active Substance: CEFACLOR
     Indication: TOOTH ABSCESS
     Dosage: 750 MG
     Route: 048
     Dates: start: 20200906, end: 20200915
  2. VOLTAREN [Suspect]
     Active Substance: DICLOFENAC SODIUM
     Indication: TOOTH ABSCESS
     Dosage: 25 MG
     Route: 048
     Dates: start: 20200906, end: 20200915

REACTIONS (1)
  - Stevens-Johnson syndrome [Recovering/Resolving]

NARRATIVE: CASE EVENT DATE: 20200918
